FAERS Safety Report 6399515-9 (Version None)
Quarter: 2009Q4

REPORT INFORMATION
  Report Type: 
  Country: None (occurrence: None)
  Receive Date: 20091013
  Receipt Date: 20091013
  Transmission Date: 20100525
  Serious: No
  Sender: FDA-Public Use
  Company Number: None

PATIENT
  Sex: Female

DRUGS (1)
  1. BACTRIM DS [Suspect]
     Indication: SKIN INFECTION
     Dosage: 800/160MG 2 BID ORAL
     Route: 048

REACTIONS (6)
  - DISCOMFORT [None]
  - EYELID OEDEMA [None]
  - LIP SWELLING [None]
  - PRURITUS [None]
  - RASH [None]
  - THROAT LESION [None]
